FAERS Safety Report 8032536-9 (Version None)
Quarter: 2012Q1

REPORT INFORMATION
  Report Type: 
  Country: None (occurrence: None)
  Receive Date: 20120110
  Receipt Date: 20110815
  Transmission Date: 20120608
  Serious: No
  Sender: FDA-Public Use
  Company Number: US-MYLANLABS-2011S1016998

PATIENT
  Age: 67 Year
  Sex: Male

DRUGS (2)
  1. PRILOSEC [Concomitant]
     Indication: ABDOMINAL DISCOMFORT
  2. LOVASTATIN [Suspect]
     Indication: BLOOD CHOLESTEROL INCREASED
     Route: 048

REACTIONS (3)
  - ARTHRALGIA [None]
  - EYE PAIN [None]
  - HEADACHE [None]
